FAERS Safety Report 26165457 (Version 1)
Quarter: 2025Q4

REPORT INFORMATION
  Report Type: Spontaneous
  Country: US (occurrence: None)
  Receive Date: 20251216
  Receipt Date: 20251216
  Transmission Date: 20260118
  Serious: Yes (Hospitalization)
  Sender: FDA-CTU
  Company Number: None

PATIENT
  Age: 19 Year
  Sex: Female

DRUGS (6)
  1. XOLAIR PFS [Suspect]
     Active Substance: OMALIZUMAB
     Indication: Food allergy
     Dosage: OTHER QUANTITY : 300MG/ML;?OTHER FREQUENCY : EVERY 28 DAYS;
     Route: 058
  2. XOLAIR PFS [Suspect]
     Active Substance: OMALIZUMAB
     Indication: Food allergy
     Dosage: OTHER FREQUENCY : EVERY 28 DAYS;
  3. SPIRONOLACTONE [Concomitant]
     Active Substance: SPIRONOLACTONE
  4. SPRINTEC [Concomitant]
     Active Substance: ETHINYL ESTRADIOL\NORGESTIMATE
  5. EPIPEN [Concomitant]
     Active Substance: EPINEPHRINE
  6. ADVAIR DISKUS [Concomitant]
     Active Substance: FLUTICASONE PROPIONATE\SALMETEROL XINAFOATE

REACTIONS (2)
  - Hypersensitivity [None]
  - Food allergy [None]

NARRATIVE: CASE EVENT DATE: 20251209
